FAERS Safety Report 22188385 (Version 2)
Quarter: 2023Q2

REPORT INFORMATION
  Report Type: Report from Study
  Country: CR (occurrence: CR)
  Receive Date: 20230408
  Receipt Date: 20230422
  Transmission Date: 20230722
  Serious: Yes (Life-Threatening, Hospitalization, Other)
  Sender: FDA-Public Use
  Company Number: CR-AMGEN-CRISL2023033030

PATIENT
  Age: 73 Year
  Sex: Female

DRUGS (3)
  1. VECTIBIX [Suspect]
     Active Substance: PANITUMUMAB
     Indication: Colon cancer
     Dosage: 396 MILLIGRAM, Q2WK
     Route: 040
     Dates: start: 20230124
  2. CAPECITABINE [Concomitant]
     Active Substance: CAPECITABINE
     Indication: Appendix cancer metastatic
     Dosage: UNK
  3. IRBESARTAN [Concomitant]
     Active Substance: IRBESARTAN
     Indication: Hypertension
     Dosage: 150 MILLIGRAM, QD
     Route: 048

REACTIONS (10)
  - Dehydration [Not Recovered/Not Resolved]
  - Diarrhoea [Not Recovered/Not Resolved]
  - Surgery [Unknown]
  - Hypovolaemic shock [Unknown]
  - Bacterial diarrhoea [Unknown]
  - Blood pressure abnormal [Unknown]
  - Skin reaction [Not Recovered/Not Resolved]
  - Oral disorder [Not Recovered/Not Resolved]
  - Vasculitis [Unknown]
  - Abdominal pain upper [Unknown]

NARRATIVE: CASE EVENT DATE: 20230101
